FAERS Safety Report 5604590-2 (Version None)
Quarter: 2008Q1

REPORT INFORMATION
  Report Type: 
  Country: None (occurrence: None)
  Receive Date: 20080128
  Receipt Date: 20080122
  Transmission Date: 20080703
  Serious: Yes (Other)
  Sender: FDA-Public Use
  Company Number: GB-ASTRAZENECA-2007GB02613

PATIENT
  Age: 1312 Day
  Sex: Male
  Weight: 16 kg

DRUGS (5)
  1. BUPIVACAINE [Suspect]
     Indication: CIRCUMCISION
     Dosage: DORSAL NERVE BLOCK
     Dates: start: 20071130
  2. PARACETAMOL [Concomitant]
     Indication: ANALGESIA
     Route: 048
  3. IBUPROFEN [Concomitant]
     Indication: ANALGESIA
     Route: 048
  4. REMIFENTANIL [Concomitant]
     Indication: GENERAL ANAESTHESIA
     Route: 042
     Dates: start: 20071130
  5. PROPOFOL [Concomitant]
     Indication: GENERAL ANAESTHESIA
     Route: 042
     Dates: start: 20071130

REACTIONS (2)
  - DRUG INEFFECTIVE [None]
  - ILL-DEFINED DISORDER [None]
